FAERS Safety Report 5504776-1 (Version None)
Quarter: 2007Q4

REPORT INFORMATION
  Report Type: 
  Country: None (occurrence: None)
  Receive Date: 20071031
  Receipt Date: 20071031
  Transmission Date: 20080405
  Serious: Yes (Other)
  Sender: FDA-Public Use
  Company Number: None

PATIENT
  Age: 63 Year
  Sex: Male
  Weight: 102.0593 kg

DRUGS (1)
  1. ACTOS [Suspect]
     Dosage: 30MG 1/DAY

REACTIONS (3)
  - INCREASED APPETITE [None]
  - LETHARGY [None]
  - WEIGHT INCREASED [None]
